FAERS Safety Report 5952599-1 (Version None)
Quarter: 2008Q4

REPORT INFORMATION
  Report Type: 
  Country: None (occurrence: None)
  Receive Date: 20081031
  Receipt Date: 20071030
  Transmission Date: 20090506
  Serious: Yes (Hospitalization)
  Sender: FDA-Public Use
  Company Number: US021594

PATIENT
  Age: 49 Year
  Sex: Male
  Weight: 73.9363 kg

DRUGS (6)
  1. PROVIGIL [Suspect]
     Indication: SLEEP APNOEA SYNDROME
     Dosage: 200 MG BID ORAL
     Route: 048
     Dates: start: 20070101, end: 20071027
  2. ATENOLOL [Concomitant]
  3. CLONIDINE [Concomitant]
  4. OXYCONTIN [Concomitant]
  5. CYMBALTA [Concomitant]
  6. DILTIAZEM [Concomitant]

REACTIONS (2)
  - INTENTIONAL SELF-INJURY [None]
  - SOMATIC DELUSION [None]
